FAERS Safety Report 14069686 (Version 7)
Quarter: 2018Q2

REPORT INFORMATION
  Report Type: Spontaneous
  Country: JP (occurrence: JP)
  Receive Date: 20171010
  Receipt Date: 20180409
  Transmission Date: 20180711
  Serious: Yes (Life-Threatening, Hospitalization, Other)
  Sender: FDA-Public Use
  Company Number: JP-009507513-1709JPN001727J

PATIENT
  Age: 83 Year
  Sex: Male
  Weight: 53 kg

DRUGS (2)
  1. KEYTRUDA [Suspect]
     Active Substance: PEMBROLIZUMAB
     Indication: LUNG ADENOCARCINOMA
     Dosage: 200 MG, Q3W
     Route: 041
     Dates: start: 20170810, end: 20170901
  2. AVOLVE [Suspect]
     Active Substance: DUTASTERIDE
     Indication: DYSURIA
     Dosage: 1 DF, QD
     Route: 048
     Dates: start: 201708

REACTIONS (7)
  - Dysphagia [Not Recovered/Not Resolved]
  - Groin pain [Recovering/Resolving]
  - Hepatic function abnormal [Not Recovered/Not Resolved]
  - Myasthenia gravis [Recovering/Resolving]
  - Eyelid ptosis [Recovering/Resolving]
  - Vocal cord paralysis [Not Recovered/Not Resolved]
  - Rhabdomyolysis [Recovering/Resolving]

NARRATIVE: CASE EVENT DATE: 201709
